FAERS Safety Report 6317805-2 (Version None)
Quarter: 2009Q3

REPORT INFORMATION
  Report Type: 
  Country: None (occurrence: None)
  Receive Date: 20090821
  Receipt Date: 20090601
  Transmission Date: 20100115
  Serious: No
  Sender: FDA-Public Use
  Company Number: US-BAYER-200922474NA

PATIENT
  Age: 37 Year
  Sex: Female

DRUGS (1)
  1. MIRENA [Suspect]
     Indication: CONTRACEPTION
     Dosage: CONTINUOUS
     Route: 015
     Dates: start: 20090428, end: 20090529

REACTIONS (6)
  - ALOPECIA [None]
  - ANXIETY [None]
  - DEPRESSION [None]
  - LIBIDO DECREASED [None]
  - NERVOUSNESS [None]
  - WEIGHT DECREASED [None]
